FAERS Safety Report 20944784 (Version 1)
Quarter: 2022Q2

REPORT INFORMATION
  Report Type: Spontaneous
  Country: IT (occurrence: IT)
  Receive Date: 20220610
  Receipt Date: 20220610
  Transmission Date: 20220721
  Serious: Yes (Hospitalization)
  Sender: FDA-Public Use
  Company Number: None

PATIENT
  Age: 38 Year
  Sex: Female

DRUGS (8)
  1. OXYTOCIN [Suspect]
     Active Substance: OXYTOCIN
     Indication: Postpartum haemorrhage
     Dosage: UNKNOWN DOSAGE AND FREQUENCY ()
     Route: 065
  2. ACETAMINOPHEN [Suspect]
     Active Substance: ACETAMINOPHEN
     Indication: COVID-19
     Dosage: UNKNOWN DOSAGE AND FREQUENCY
     Route: 065
  3. CABERGOLINE [Suspect]
     Active Substance: CABERGOLINE
     Indication: Lactation inhibition therapy
     Dosage: UNKNOWN DOSAGE AND FREQUENCY
     Route: 065
  4. PIPERACILLIN AND TAZOBACTAM [Suspect]
     Active Substance: PIPERACILLIN SODIUM\TAZOBACTAM SODIUM
     Indication: Escherichia bacteraemia
     Dosage: UNKNOWN DOSAGE AND FREQUENCY
     Route: 065
  5. DEXAMETHASONE [Suspect]
     Active Substance: DEXAMETHASONE
     Indication: COVID-19
     Dosage: 8 MG DAILY
     Route: 042
  6. PAROXETINE [Suspect]
     Active Substance: PAROXETINE
     Indication: Anxiety
     Dosage: UNKNOWN DOSAGE AND FREQUENCY
     Route: 065
  7. VANCOMYCIN [Suspect]
     Active Substance: VANCOMYCIN
     Indication: Staphylococcal infection
     Dosage: UNKNOWN DOSAGE AND FREQUENCY ()
     Route: 065
  8. OXACILLIN [Suspect]
     Active Substance: OXACILLIN SODIUM
     Indication: Staphylococcal bacteraemia
     Dosage: UNKNOWN DOSAGE AND FREQUENCY ()
     Route: 065

REACTIONS (5)
  - Pulmonary infarction [Recovered/Resolved]
  - Postpartum venous thrombosis [Recovered/Resolved]
  - Condition aggravated [Recovered/Resolved]
  - Catheter site thrombosis [Recovered/Resolved]
  - Pulmonary embolism [Recovered/Resolved]
